FAERS Safety Report 5449869-2 (Version None)
Quarter: 2007Q3

REPORT INFORMATION
  Report Type: 
  Country: None (occurrence: None)
  Receive Date: 20070907
  Receipt Date: 20070907
  Transmission Date: 20080115
  Serious: Yes (Other)
  Sender: FDA-Public Use
  Company Number: None

PATIENT
  Age: 47 Year
  Sex: Female
  Weight: 56.6996 kg

DRUGS (2)
  1. AMBIEN [Suspect]
     Indication: INITIAL INSOMNIA
     Dosage: 5MG NIGHTLY PO  6 DOSES TOTAL, 1X5MG/EVE
     Route: 048
     Dates: start: 20070715, end: 20070721
  2. AMBIEN [Suspect]
     Indication: MIDDLE INSOMNIA
     Dosage: 5MG NIGHTLY PO  6 DOSES TOTAL, 1X5MG/EVE
     Route: 048
     Dates: start: 20070715, end: 20070721

REACTIONS (16)
  - ASTHENIA [None]
  - CHILLS [None]
  - CONDITION AGGRAVATED [None]
  - DIARRHOEA [None]
  - DRUG HYPERSENSITIVITY [None]
  - DYSPNOEA [None]
  - FOOD POISONING [None]
  - FORMICATION [None]
  - HEADACHE [None]
  - ILL-DEFINED DISORDER [None]
  - INSOMNIA [None]
  - MALAISE [None]
  - MUSCULAR WEAKNESS [None]
  - ORAL INTAKE REDUCED [None]
  - PYREXIA [None]
  - VOMITING [None]
